FAERS Safety Report 13737637 (Version 1)
Quarter: 2017Q3

REPORT INFORMATION
  Report Type: Spontaneous
  Country: US (occurrence: US)
  Receive Date: 20170710
  Receipt Date: 20170710
  Transmission Date: 20171127
  Serious: No
  Sender: FDA-Public Use
  Company Number: US-SAOL THERAPEUTICS-2016SAO00770

PATIENT
  Age: 50 Year
  Sex: Male

DRUGS (1)
  1. BACLOFEN. [Suspect]
     Active Substance: BACLOFEN
     Indication: MUSCLE SPASTICITY
     Dosage: UNK ?G, \DAY
     Route: 037

REACTIONS (5)
  - Muscle spasticity [Unknown]
  - Unevaluable event [Unknown]
  - Discomfort [Unknown]
  - Urinary incontinence [Unknown]
  - Clonus [Unknown]

NARRATIVE: CASE EVENT DATE: 20150309
